FAERS Safety Report 5045786-0 (Version None)
Quarter: 2006Q3

REPORT INFORMATION
  Report Type: 
  Country: None (occurrence: None)
  Receive Date: 20060710
  Receipt Date: 20060629
  Transmission Date: 20061208
  Serious: Yes (Other)
  Sender: FDA-Public Use
  Company Number: PHBS2006JP09941

PATIENT

DRUGS (9)
  1. DIOVAN [Concomitant]
     Route: 048
  2. CARDENALIN [Concomitant]
     Route: 048
  3. PANALDINE [Concomitant]
     Route: 048
  4. ASPIRIN [Concomitant]
     Route: 048
  5. LENDORMIN [Concomitant]
     Route: 048
  6. LOXONIN [Concomitant]
     Route: 048
  7. KALLIKREIN [Concomitant]
     Route: 048
  8. COAX [Concomitant]
     Route: 048
  9. LAMISIL [Suspect]
     Dosage: 125 MG/D
     Route: 048

REACTIONS (1)
  - ELECTROCARDIOGRAM QT PROLONGED [None]
